FAERS Safety Report 8817211 (Version 1)
Quarter: 2012Q4

REPORT INFORMATION
  Report Type: 
  Country: DE (occurrence: DE)
  Receive Date: 20121002
  Receipt Date: 20121002
  Transmission Date: 20130627
  Serious: Yes (Other)
  Sender: FDA-Public Use
  Company Number: DE-009507513-1209DEU012064

PATIENT
  Sex: Female
  Weight: 58 kg

DRUGS (3)
  1. NOXAFIL [Suspect]
     Indication: GRAFT VERSUS HOST DISEASE
     Dosage: 200 mg, tid
     Route: 048
  2. CYCLOSPORINE [Concomitant]
     Indication: GRAFT VERSUS HOST DISEASE
     Dosage: UNK
  3. PREDNISONE [Concomitant]
     Indication: GRAFT VERSUS HOST DISEASE
     Dosage: UNK
     Route: 048

REACTIONS (2)
  - Arrhythmia [Recovered/Resolved]
  - Off label use [Unknown]
